FAERS Safety Report 15553801 (Version 1)
Quarter: 2018Q4

REPORT INFORMATION
  Report Type: Spontaneous
  Country: US (occurrence: US)
  Receive Date: 20181026
  Receipt Date: 20181026
  Transmission Date: 20190205
  Serious: No
  Sender: FDA-Public Use
  Company Number: US-SA-2018SA295134

PATIENT
  Sex: Male

DRUGS (2)
  1. DUPIXENT [Suspect]
     Active Substance: DUPILUMAB
     Indication: DERMATITIS ATOPIC
     Dosage: 300 MG, QOW
     Route: 058
     Dates: start: 201806
  2. FLU VACCINE VII [Suspect]
     Active Substance: INFLUENZA VIRUS VACCINE
     Dosage: UNK UNK, 1X
     Dates: start: 201810, end: 201810

REACTIONS (1)
  - Eyelids pruritus [Unknown]

NARRATIVE: CASE EVENT DATE: 2018
